FAERS Safety Report 4742088-4 (Version None)
Quarter: 2005Q3

REPORT INFORMATION
  Report Type: 
  Country: None (occurrence: None)
  Receive Date: 20050808
  Receipt Date: 20050727
  Transmission Date: 20060218
  Serious: Yes (Life-Threatening, Hospitalization)
  Sender: FDA-Public Use
  Company Number: 2005AD000086

PATIENT
  Age: 73 Year
  Sex: Female

DRUGS (4)
  1. CEPHALEXIN [Suspect]
  2. INSULIN [Concomitant]
  3. METFORMIN [Concomitant]
  4. THYROXINE [Concomitant]

REACTIONS (9)
  - CARDIAC OUTPUT DECREASED [None]
  - HYPOTENSION [None]
  - METABOLIC ACIDOSIS [None]
  - NEPHRITIS INTERSTITIAL [None]
  - OLIGURIA [None]
  - PULMONARY HYPERTENSION [None]
  - RENAL FAILURE ACUTE [None]
  - RESPIRATORY ARREST [None]
  - VENTRICULAR DYSFUNCTION [None]
